FAERS Safety Report 8127172-X (Version None)
Quarter: 2012Q1

REPORT INFORMATION
  Report Type: 
  Country: None (occurrence: None)
  Receive Date: 20120210
  Receipt Date: 20120203
  Transmission Date: 20120608
  Serious: Yes (Hospitalization)
  Sender: FDA-Public Use
  Company Number: RS-PFIZER INC-2012035976

PATIENT
  Age: 64 Year
  Sex: Female

DRUGS (5)
  1. PANTOPRAZOLE [Suspect]
     Indication: GASTRITIS PROPHYLAXIS
     Dosage: UNK
     Route: 048
     Dates: start: 20111220, end: 20111230
  2. MELOXICAM [Suspect]
     Dosage: 1 DF, UNK
     Route: 048
     Dates: start: 20111220, end: 20111230
  3. ECOMER [Concomitant]
     Indication: MEDICAL DIET
     Dosage: UNK
     Dates: start: 20090101, end: 20120108
  4. NORFLOXACIN [Suspect]
     Indication: CYSTITIS
     Dosage: UNK
     Route: 048
     Dates: start: 20111220, end: 20111230
  5. ALL OTHER THERAPEUTIC PRODUCTS [Concomitant]

REACTIONS (3)
  - RASH ERYTHEMATOUS [None]
  - RASH PAPULAR [None]
  - DERMATITIS ALLERGIC [None]
